FAERS Safety Report 8925369 (Version 1)
Quarter: 2012Q4

REPORT INFORMATION
  Report Type: 
  Country: TW (occurrence: TW)
  Receive Date: 20121126
  Receipt Date: 20121126
  Transmission Date: 20130627
  Serious: Yes (Death, Hospitalization)
  Sender: FDA-Public Use
  Company Number: PHHY2012TW107385

PATIENT
  Age: 30 Year
  Sex: Male

DRUGS (4)
  1. CARBAMAZEPINE [Suspect]
     Indication: MOOD ALTERED
     Dosage: 200 mg, BID
  2. HALOPERIDOL [Concomitant]
     Dosage: 5 mg, BID
  3. CLONAZEPAM [Concomitant]
     Dosage: 2 mg, QD
  4. ZOLPIDEM [Concomitant]
     Dosage: 20 mg, QD, each night

REACTIONS (27)
  - Acute respiratory distress syndrome [Fatal]
  - Multi-organ failure [Fatal]
  - Rhabdomyolysis [Unknown]
  - Hypovolaemic shock [Unknown]
  - Chromaturia [Unknown]
  - Proteinuria [Unknown]
  - Myalgia [Unknown]
  - Myoglobin urine present [Unknown]
  - Gastrointestinal haemorrhage [Unknown]
  - Sinus tachycardia [Unknown]
  - Heart rate increased [Unknown]
  - Stevens-Johnson syndrome [Unknown]
  - Toxic epidermal necrolysis [Unknown]
  - Decreased appetite [Unknown]
  - Conjunctivitis [Unknown]
  - Mouth ulceration [Unknown]
  - Genital ulceration [Unknown]
  - Skin erosion [Unknown]
  - Epidermal necrosis [Unknown]
  - Skin exfoliation [Unknown]
  - Necrosis [Unknown]
  - Malaise [Unknown]
  - Rash pruritic [Unknown]
  - Rash papular [Unknown]
  - Blister [Unknown]
  - Nikolsky^s sign [Unknown]
  - Renal impairment [Unknown]
